FAERS Safety Report 14629777 (Version 2)
Quarter: 2018Q1

REPORT INFORMATION
  Report Type: Report from Study
  Country: IT (occurrence: IT)
  Receive Date: 20180313
  Receipt Date: 20180321
  Transmission Date: 20180509
  Serious: Yes (Hospitalization, Other)
  Sender: FDA-Public Use
  Company Number: IT-ACCORD-063563

PATIENT
  Age: 68 Year
  Sex: Female

DRUGS (4)
  1. IRINOTECAN [Suspect]
     Active Substance: IRINOTECAN
     Indication: COLORECTAL CANCER METASTATIC
     Dosage: ALSO RECEIVED 340 MG FROM 12-JAN-2016 TO 12-JAN-2016
     Route: 041
     Dates: start: 20150826
  2. FOLINIC ACID [Suspect]
     Active Substance: LEUCOVORIN
     Indication: COLORECTAL CANCER METASTATIC
     Dosage: ALSO RECEIVED 380 MG FROM 12-JAN-2016 TO 12-JAN-2016
     Route: 041
     Dates: start: 20150826
  3. AFLIBERCEPT [Suspect]
     Active Substance: AFLIBERCEPT
     Indication: COLORECTAL CANCER METASTATIC
     Dosage: ALSO RECEIVED 320 MG FROM 12-JAN-2016 TO 12-JAN-2106
     Route: 041
     Dates: start: 20150826
  4. FLUOROURACIL. [Suspect]
     Active Substance: FLUOROURACIL
     Indication: COLORECTAL CANCER METASTATIC
     Dosage: ALSO RECEIVED IV DRIP 3600 MG ON 09-SEP-2015, 4500 MG ON 09-DEC-2015 AND 12-JAN-2016,
     Route: 040
     Dates: start: 20150826

REACTIONS (4)
  - Nausea [Recovered/Resolved]
  - Proteinuria [Recovered/Resolved]
  - Hypertensive crisis [Recovered/Resolved]
  - Oedema peripheral [Recovered/Resolved]

NARRATIVE: CASE EVENT DATE: 20150918
